FAERS Safety Report 11932729 (Version 3)
Quarter: 2016Q1

REPORT INFORMATION
  Report Type: Spontaneous
  Country: US (occurrence: US)
  Receive Date: 20160120
  Receipt Date: 20160209
  Transmission Date: 20160526
  Serious: Yes (Hospitalization)
  Sender: FDA-Public Use
  Company Number: US-UNITED THERAPEUTICS-UNT-2016-000610

PATIENT
  Age: 68 Year
  Sex: Female
  Weight: 50.34 kg

DRUGS (3)
  1. VELETRI [Suspect]
     Active Substance: EPOPROSTENOL
     Indication: PRODUCT USED FOR UNKNOWN INDICATION
  2. ADCIRCA [Concomitant]
     Active Substance: TADALAFIL
     Indication: PRODUCT USED FOR UNKNOWN INDICATION
  3. ORENITRAM [Suspect]
     Active Substance: TREPROSTINIL
     Indication: PULMONARY HYPERTENSION
     Dosage: 3 MG, BID
     Route: 048
     Dates: start: 20150922

REACTIONS (3)
  - Hypoaesthesia [Unknown]
  - Right ventricular failure [Unknown]
  - Pain in extremity [Unknown]

NARRATIVE: CASE EVENT DATE: 201601
